FAERS Safety Report 6356333-5 (Version None)
Quarter: 2009Q3

REPORT INFORMATION
  Report Type: 
  Country: None (occurrence: None)
  Receive Date: 20090915
  Receipt Date: 20090910
  Transmission Date: 20100115
  Serious: Yes (Other)
  Sender: FDA-Public Use
  Company Number: PT-PFIZER INC-2009242715

PATIENT

DRUGS (3)
  1. ZARATOR [Suspect]
     Indication: HYPERCHOLESTEROLAEMIA
     Dosage: 40 MG, 1X/DAY
     Route: 048
     Dates: start: 20090521, end: 20090524
  2. ALPRAZOLAM [Concomitant]
     Dosage: UNK
     Route: 048
     Dates: start: 20050526
  3. BETAHISTINE HYDROCHLORIDE [Concomitant]
     Dosage: 16 MG, UNK
     Route: 048
     Dates: start: 20050526

REACTIONS (6)
  - COUGH [None]
  - EYE SWELLING [None]
  - MYALGIA [None]
  - PRURITUS [None]
  - SWELLING FACE [None]
  - SWOLLEN TONGUE [None]
